FAERS Safety Report 10610554 (Version 1)
Quarter: 2014Q4

REPORT INFORMATION
  Report Type: Spontaneous
  Country: US (occurrence: US)
  Receive Date: 20141126
  Receipt Date: 20141126
  Transmission Date: 20150529
  Serious: No
  Sender: FDA-Public Use
  Company Number: US-TEVA-524819USA

PATIENT
  Sex: Male

DRUGS (1)
  1. NUVIGIL [Suspect]
     Active Substance: ARMODAFINIL

REACTIONS (3)
  - Product quality issue [Unknown]
  - Oral pain [Unknown]
  - Discomfort [Unknown]
